FAERS Safety Report 24677968 (Version 1)
Quarter: 2024Q4

REPORT INFORMATION
  Report Type: Other
  Country: DE (occurrence: DE)
  Receive Date: 20241129
  Receipt Date: 20241129
  Transmission Date: 20250115
  Serious: Yes (Other)
  Sender: ANI
  Company Number: DE-ANIPHARMA-012986

PATIENT
  Age: 28 Year
  Sex: Male

DRUGS (11)
  1. AMITRIPTYLINE [Suspect]
     Active Substance: AMITRIPTYLINE
     Indication: Product used for unknown indication
  2. NORTRIPTYLINE [Suspect]
     Active Substance: NORTRIPTYLINE
     Indication: Product used for unknown indication
  3. MORPHINE [Suspect]
     Active Substance: MORPHINE
     Indication: Product used for unknown indication
  4. LEVOMETHADONE [Concomitant]
     Active Substance: LEVOMETHADONE
     Indication: Product used for unknown indication
  5. NORDAZEPAM [Concomitant]
     Active Substance: NORDAZEPAM
     Indication: Product used for unknown indication
  6. BROMAZEPAM [Concomitant]
     Active Substance: BROMAZEPAM
     Indication: Product used for unknown indication
  7. CLONAZEPAM [Concomitant]
     Active Substance: CLONAZEPAM
     Indication: Product used for unknown indication
  8. 7-AMINOCLONAZEPAM [Concomitant]
     Active Substance: 7-AMINOCLONAZEPAM
     Indication: Product used for unknown indication
  9. DULOXETINE [Concomitant]
     Active Substance: DULOXETINE
     Indication: Product used for unknown indication
  10. DRONABINOL [Concomitant]
     Active Substance: DRONABINOL
     Indication: Product used for unknown indication
  11. ALPHA-PHP [Concomitant]
     Active Substance: ALPHA-PHP
     Indication: Product used for unknown indication

REACTIONS (1)
  - Drug abuse [Unknown]
